FAERS Safety Report 16660893 (Version 3)
Quarter: 2019Q4

REPORT INFORMATION
  Report Type: Spontaneous
  Country: US (occurrence: US)
  Receive Date: 20190802
  Receipt Date: 20191120
  Transmission Date: 20200122
  Serious: Yes (Hospitalization, Other)
  Sender: FDA-Public Use
  Company Number: US-NOVOPROD-676163

PATIENT
  Age: 66 Year
  Sex: Male
  Weight: 92.5 kg

DRUGS (1)
  1. TRESIBA [Suspect]
     Active Substance: INSULIN DEGLUDEC
     Indication: TYPE 2 DIABETES MELLITUS
     Dosage: 26 IU, QD
     Route: 058
     Dates: start: 201902

REACTIONS (7)
  - Metabolic acidosis [Recovering/Resolving]
  - Hyperglycaemia [Recovering/Resolving]
  - Fall [Unknown]
  - Diabetic ketoacidosis [Unknown]
  - Toxic encephalopathy [Recovering/Resolving]
  - Acute kidney injury [Unknown]
  - Insulin resistant diabetes [Unknown]

NARRATIVE: CASE EVENT DATE: 20190724
